FAERS Safety Report 12980813 (Version 1)
Quarter: 2016Q4

REPORT INFORMATION
  Report Type: Spontaneous
  Country: JP (occurrence: JP)
  Receive Date: 20161128
  Receipt Date: 20161128
  Transmission Date: 20170207
  Serious: Yes (Death)
  Sender: FDA-Public Use
  Company Number: JP-SUCAMPO PHARMACEUTICALS INC.-SPI201601205

PATIENT
  Age: 96 Year
  Sex: Male

DRUGS (3)
  1. AMITIZA [Suspect]
     Active Substance: LUBIPROSTONE
     Indication: CONSTIPATION
     Dosage: UNK
     Route: 048
     Dates: start: 20161025, end: 20161108
  2. UNKNOWN [Concomitant]
     Active Substance: UNSPECIFIED INGREDIENT
     Indication: HYPERTENSION
     Dosage: UNK
     Route: 048
     Dates: end: 20161103
  3. UNKNOWN [Concomitant]
     Active Substance: UNSPECIFIED INGREDIENT
     Indication: CONSTIPATION
     Dosage: UNK, TID
     Route: 048
     Dates: end: 20161108

REACTIONS (1)
  - Hypotension [Fatal]

NARRATIVE: CASE EVENT DATE: 20161102
